FAERS Safety Report 14219582 (Version 3)
Quarter: 2018Q1

REPORT INFORMATION
  Report Type: Report from Study
  Country: None (occurrence: FI)
  Receive Date: 20171123
  Receipt Date: 20180323
  Transmission Date: 20180508
  Serious: Yes (Hospitalization, Other)
  Sender: FDA-Public Use
  Company Number: FI-ABBVIE-17K-055-2170535-00

PATIENT
  Age: 64 Year
  Sex: Female

DRUGS (2)
  1. DUODOPA [Suspect]
     Active Substance: CARBIDOPA\LEVODOPA
     Dosage: NIGHT: 4.8 ML/H; DAY: 6.5 ML/H; NO SEPARATE MORNING DOSE
     Route: 050
     Dates: start: 201711
  2. DUODOPA [Suspect]
     Active Substance: CARBIDOPA\LEVODOPA
     Indication: PARKINSON^S DISEASE
     Dosage: 6.5 ML AT NIGHT; 4.8 ML AT DAY. 24H TREATMENT.
     Route: 050
     Dates: start: 201705, end: 201711

REACTIONS (9)
  - Device issue [Unknown]
  - Dehydration [Recovered/Resolved]
  - Loss of consciousness [Unknown]
  - Syncope [Recovered/Resolved]
  - Fatigue [Unknown]
  - Device leakage [Unknown]
  - Feeling abnormal [Recovered/Resolved]
  - Device extension damage [Unknown]
  - Incorrect dose administered [Recovered/Resolved]

NARRATIVE: CASE EVENT DATE: 2017
